FAERS Safety Report 7389748-7 (Version None)
Quarter: 2011Q2

REPORT INFORMATION
  Report Type: 
  Country: None (occurrence: None)
  Receive Date: 20110401
  Receipt Date: 20110321
  Transmission Date: 20111010
  Serious: Yes (Hospitalization)
  Sender: FDA-Public Use
  Company Number: US-JNJFOC-20110309318

PATIENT
  Sex: Male
  Weight: 55.93 kg

DRUGS (6)
  1. INFLIXIMAB, RECOMBINANT [Suspect]
     Indication: CROHN'S DISEASE
     Route: 042
  2. INFLIXIMAB, RECOMBINANT [Suspect]
     Route: 042
  3. INFLIXIMAB, RECOMBINANT [Suspect]
     Route: 042
  4. ANTIBIOTICS [Concomitant]
     Indication: CROHN'S DISEASE
  5. TRIAMCINOLONE ACETONIDE [Concomitant]
  6. MESALAMINE [Concomitant]

REACTIONS (1)
  - CROHN'S DISEASE [None]
